FAERS Safety Report 4562655-0 (Version None)
Quarter: 2005Q1

REPORT INFORMATION
  Report Type: 
  Country: None (occurrence: None)
  Receive Date: 20050124
  Receipt Date: 20041215
  Transmission Date: 20050727
  Serious: Yes (Hospitalization, Other)
  Sender: FDA-Public Use
  Company Number: 2004217580FR

PATIENT
  Age: 32 Year
  Sex: Female
  Weight: 64 kg

DRUGS (9)
  1. ZYVOX [Suspect]
     Indication: ACTINOMYCOSIS
     Dosage: 600 MG (TWICE DAILY), ORAL
     Route: 048
     Dates: start: 20040119, end: 20040615
  2. GABAPENTIN [Concomitant]
  3. OXCARBAZEPINE) (OXCARBAZEPINE) [Concomitant]
  4. PIRACETAM (PIRACETAM) [Concomitant]
  5. ZOLPIDEM TARTRATE [Concomitant]
  6. AMOXICILLIN TRIHYDRATE [Concomitant]
  7. FOLIC ACID [Concomitant]
  8. GAVISCON [Concomitant]
  9. OMEPRAZOLE [Concomitant]

REACTIONS (2)
  - ANAEMIA [None]
  - PERIPHERAL SENSORY NEUROPATHY [None]
